FAERS Safety Report 7493963-1 (Version None)
Quarter: 2011Q2

REPORT INFORMATION
  Report Type: 
  Country: None (occurrence: None)
  Receive Date: 20110513
  Receipt Date: 20110428
  Transmission Date: 20111010
  Serious: Yes (Other)
  Sender: FDA-Public Use
  Company Number: 032254

PATIENT

DRUGS (1)
  1. LACOSAMIDE [Suspect]
     Indication: PARTIAL SEIZURES

REACTIONS (1)
  - GRAND MAL CONVULSION [None]
